FAERS Safety Report 5124868-9 (Version None)
Quarter: 2006Q4

REPORT INFORMATION
  Report Type: 
  Country: None (occurrence: None)
  Receive Date: 20061011
  Receipt Date: 20061003
  Transmission Date: 20070319
  Serious: Yes (Other)
  Sender: FDA-Public Use
  Company Number: ZA-ROCHE-466003

PATIENT
  Sex: Female

DRUGS (2)
  1. KYTRIL [Suspect]
     Indication: VOMITING
     Route: 042
  2. CLOPAMON [Suspect]
     Indication: VOMITING
     Route: 042

REACTIONS (1)
  - SEDATION [None]
